FAERS Safety Report 19782300 (Version 1)
Quarter: 2021Q3

REPORT INFORMATION
  Report Type: Spontaneous
  Country: US (occurrence: US)
  Receive Date: 20210903
  Receipt Date: 20210903
  Transmission Date: 20211014
  Serious: No
  Sender: FDA-Public Use
  Company Number: US-ORGANON-O2108USA001918

PATIENT
  Sex: Female

DRUGS (1)
  1. ETONOGESTREL IMPLANT [Suspect]
     Active Substance: ETONOGESTREL
     Indication: HEAVY MENSTRUAL BLEEDING
     Dosage: 1 DOSAGE FORM (IMPLANT)
     Route: 059

REACTIONS (1)
  - Product use in unapproved indication [Unknown]
